FAERS Safety Report 6531559-6 (Version None)
Quarter: 2010Q1

REPORT INFORMATION
  Report Type: 
  Country: None (occurrence: None)
  Receive Date: 20100108
  Receipt Date: 20100107
  Transmission Date: 20100710
  Serious: Yes (Death)
  Sender: FDA-Public Use
  Company Number: IL-ROCHE-678153

PATIENT
  Age: 25 Year
  Sex: Female

DRUGS (1)
  1. TAMIFLU [Suspect]
     Route: 048

REACTIONS (1)
  - DEATH [None]
